APPROVED DRUG PRODUCT: PHENOXYBENZAMINE HYDROCHLORIDE
Active Ingredient: PHENOXYBENZAMINE HYDROCHLORIDE
Strength: 10MG
Dosage Form/Route: CAPSULE;ORAL
Application: A204522 | Product #001 | TE Code: AB
Applicant: PH HEALTH LTD
Approved: Jan 24, 2017 | RLD: No | RS: Yes | Type: RX